FAERS Safety Report 19845012 (Version 1)
Quarter: 2021Q3

REPORT INFORMATION
  Report Type: Spontaneous
  Country: US (occurrence: US)
  Receive Date: 20210916
  Receipt Date: 20210916
  Transmission Date: 20211014
  Serious: Yes (Death)
  Sender: FDA-Public Use
  Company Number: None

PATIENT
  Age: 60 Year
  Sex: Female

DRUGS (14)
  1. LUSPATERCEPT 125MG SQ [Suspect]
     Active Substance: LUSPATERCEPT
     Indication: PRODUCT USED FOR UNKNOWN INDICATION
     Route: 058
     Dates: start: 20210428, end: 20210428
  2. ACETAMINOPHEN. [Concomitant]
     Active Substance: ACETAMINOPHEN
  3. ASPIRIN. [Concomitant]
     Active Substance: ASPIRIN
  4. ONDANSETRON [Concomitant]
     Active Substance: ONDANSETRON
  5. CARVEDILOL. [Concomitant]
     Active Substance: CARVEDILOL
  6. METFORMIN [Concomitant]
     Active Substance: METFORMIN HYDROCHLORIDE
  7. HYDRALAZINE [Concomitant]
     Active Substance: HYDRALAZINE HYDROCHLORIDE
  8. LISINOPRIL. [Concomitant]
     Active Substance: LISINOPRIL
  9. OXYCODONE [Concomitant]
     Active Substance: OXYCODONE
  10. FUROSEMIDE. [Concomitant]
     Active Substance: FUROSEMIDE
  11. SPIRONOLACTONE. [Concomitant]
     Active Substance: SPIRONOLACTONE
  12. ARANESP [Concomitant]
     Active Substance: DARBEPOETIN ALFA
  13. DOCUSATE?SENNA [Concomitant]
  14. NITROGLYCERIN. [Concomitant]
     Active Substance: NITROGLYCERIN

REACTIONS (1)
  - Death [None]

NARRATIVE: CASE EVENT DATE: 20210430
